FAERS Safety Report 9561744 (Version 4)
Quarter: 2014Q2

REPORT INFORMATION
  Report Type: Spontaneous
  Country: US (occurrence: US)
  Receive Date: 20130927
  Receipt Date: 20140423
  Transmission Date: 20141212
  Serious: No
  Sender: FDA-Public Use
  Company Number: US-BIOGENIDEC-2013BI062924

PATIENT
  Age: 46 Year
  Sex: Female

DRUGS (7)
  1. TECFIDERA [Suspect]
     Indication: MULTIPLE SCLEROSIS
     Route: 048
  2. AVONEX [Concomitant]
     Indication: MULTIPLE SCLEROSIS
     Route: 030
  3. ASPIRIN [Concomitant]
  4. AMLODIPINE [Concomitant]
  5. MONTELUKAST [Concomitant]
  6. BENAZEPRIL HCL [Concomitant]
  7. NEURONTIN [Concomitant]

REACTIONS (18)
  - Pain [Unknown]
  - Peripheral swelling [Not Recovered/Not Resolved]
  - Gait disturbance [Unknown]
  - Muscle tightness [Not Recovered/Not Resolved]
  - Hypoaesthesia [Not Recovered/Not Resolved]
  - Mobility decreased [Not Recovered/Not Resolved]
  - Irritability [Unknown]
  - Ovarian cyst [Unknown]
  - Stress [Unknown]
  - Central nervous system lesion [Unknown]
  - Pain in extremity [Not Recovered/Not Resolved]
  - Limb discomfort [Not Recovered/Not Resolved]
  - Personality disorder [Not Recovered/Not Resolved]
  - Arthralgia [Not Recovered/Not Resolved]
  - Decreased immune responsiveness [Unknown]
  - Nuclear magnetic resonance imaging abnormal [Unknown]
  - Memory impairment [Not Recovered/Not Resolved]
  - Frustration [Not Recovered/Not Resolved]
